FAERS Safety Report 23562755 (Version 2)
Quarter: 2024Q1

REPORT INFORMATION
  Report Type: Spontaneous
  Country: US (occurrence: US)
  Receive Date: 20240226
  Receipt Date: 20240227
  Transmission Date: 20240410
  Serious: No
  Sender: FDA-Public Use
  Company Number: US-SANOFI-01944358

PATIENT
  Age: 2 Year
  Sex: Male

DRUGS (1)
  1. DUPIXENT [Suspect]
     Active Substance: DUPILUMAB
     Indication: Asthma
     Dosage: 200 MG, Q4W
     Route: 058
     Dates: start: 2023

REACTIONS (3)
  - Pruritus [Unknown]
  - Accidental exposure to product [Unknown]
  - Exposure via skin contact [Unknown]
